FAERS Safety Report 12253506 (Version 1)
Quarter: 2016Q2

REPORT INFORMATION
  Report Type: Spontaneous
  Country: US (occurrence: US)
  Receive Date: 20160411
  Receipt Date: 20160411
  Transmission Date: 20160815
  Serious: No
  Sender: FDA-Public Use
  Company Number: ADR-2013-01547

PATIENT
  Age: 72 Year
  Sex: Female

DRUGS (16)
  1. COMPOUNDED BACLOFEN [Suspect]
     Active Substance: BACLOFEN
     Dosage: 73.77 MCG/DAY
     Route: 037
     Dates: end: 20130903
  2. DILAUDID [Suspect]
     Active Substance: HYDROMORPHONE HYDROCHLORIDE
     Dosage: 65.62 MCG/DAY
     Route: 037
     Dates: start: 20130510
  3. DILAUDID [Suspect]
     Active Substance: HYDROMORPHONE HYDROCHLORIDE
     Dosage: 1.0012 MG/DAY
     Route: 037
     Dates: start: 20131226, end: 20140116
  4. COMPOUNDED BACLOFEN [Suspect]
     Active Substance: BACLOFEN
     Dosage: 112.49MCG/DAY
     Route: 037
  5. DILAUDID [Suspect]
     Active Substance: HYDROMORPHONE HYDROCHLORIDE
     Dosage: 42.48 MCG/DAY
     Route: 037
  6. COMPOUNDED BACLOFEN [Suspect]
     Active Substance: BACLOFEN
     Dosage: 119.94 MCG/DAY
     Route: 037
     Dates: start: 20130307
  7. DILAUDID [Suspect]
     Active Substance: HYDROMORPHONE HYDROCHLORIDE
     Dosage: 65.62MCG/DAY
     Route: 037
  8. DILAUDID [Suspect]
     Active Substance: HYDROMORPHONE HYDROCHLORIDE
     Dosage: 0.5006 MG/DAY
     Route: 037
     Dates: start: 20140116
  9. COMPOUNDED BACLOFEN [Suspect]
     Active Substance: BACLOFEN
     Dosage: 92.33 MCG/DAY
     Route: 037
     Dates: start: 20130903
  10. COMPOUNDED BACLOFEN [Suspect]
     Active Substance: BACLOFEN
     Dosage: 112.49 MCG/DAY
     Route: 037
     Dates: start: 20130510
  11. COMPOUNDED BACLOFEN [Suspect]
     Active Substance: BACLOFEN
     Dosage: 84.96 MCG/DAY
     Route: 037
  12. COMPOUNDED BACLOFEN [Suspect]
     Active Substance: BACLOFEN
     Dosage: 130.14 MCG/DAY
     Route: 037
  13. DILAUDID [Suspect]
     Active Substance: HYDROMORPHONE HYDROCHLORIDE
     Dosage: 79.92 MCG/DAY
     Route: 037
     Dates: end: 20130903
  14. DILAUDID [Suspect]
     Active Substance: HYDROMORPHONE HYDROCHLORIDE
     Dosage: 100.02 MCG/DAY
     Route: 037
     Dates: start: 20130903
  15. BUPIVACAINE. [Suspect]
     Active Substance: BUPIVACAINE
     Dosage: 7.509 MG/DAY
     Route: 037
     Dates: start: 20140116
  16. DILAUDID [Suspect]
     Active Substance: HYDROMORPHONE HYDROCHLORIDE
     Dosage: 59.97 MCG/DAY
     Route: 037
     Dates: start: 20130307

REACTIONS (2)
  - Muscular weakness [Unknown]
  - Adverse drug reaction [Unknown]

NARRATIVE: CASE EVENT DATE: 20130314
